FAERS Safety Report 9100330 (Version 2)
Quarter: 2013Q1

REPORT INFORMATION
  Report Type: Report from Study
  Country: FR (occurrence: FR)
  Receive Date: 20130215
  Receipt Date: 20130306
  Transmission Date: 20140127
  Serious: Yes (Hospitalization, Other)
  Sender: FDA-Public Use
  Company Number: FR-PFIZER INC-2013058407

PATIENT
  Age: 66 Year
  Sex: Male

DRUGS (18)
  1. BLINDED NO SUBJECT DRUG [Suspect]
     Indication: HEPATOCELLULAR CARCINOMA
     Dosage: 412.5 MG, UNK
     Dates: start: 20130129
  2. BLINDED PLACEBO [Suspect]
     Indication: HEPATOCELLULAR CARCINOMA
     Dosage: 412.5 MG, UNK
     Dates: start: 20130129
  3. SUNITINIB MALATE [Suspect]
     Indication: HEPATOCELLULAR CARCINOMA
     Dosage: 412.5 MG, UNK
     Dates: start: 20130129
  4. DOXORUBICIN HCL [Suspect]
     Indication: HEPATOCELLULAR CARCINOMA
     Dosage: 5 ML, UNK
     Dates: start: 20130207
  5. SKENAN [Suspect]
     Indication: PAIN
     Dosage: 20 MG, UNK
     Dates: start: 20130212, end: 20130213
  6. ACTISKENAN [Suspect]
     Indication: PAIN
     Dosage: 10 MG, 2X/DAY
     Dates: start: 20130207, end: 20130212
  7. ATARAX [Concomitant]
     Dosage: 100 MG, SINGLE
     Dates: start: 20130207, end: 20130207
  8. PERFALGAN [Concomitant]
     Indication: PAIN
     Dosage: 1 G EVERY 6 HOURS (4X/DAY)
     Dates: start: 20130211, end: 20130212
  9. SYMBICORT [Concomitant]
     Indication: CHRONIC OBSTRUCTIVE PULMONARY DISEASE
     Dosage: 12 UG, UNK
  10. SYMBICORT [Concomitant]
     Indication: ASTHMA
  11. AERIUS [Concomitant]
     Indication: CHRONIC OBSTRUCTIVE PULMONARY DISEASE
     Dosage: UNK
  12. AERIUS [Concomitant]
     Indication: ASTHMA
  13. SPIRIVA [Concomitant]
     Indication: CHRONIC OBSTRUCTIVE PULMONARY DISEASE
     Dosage: 18 UG, UNK
  14. SPIRIVA [Concomitant]
     Indication: ASTHMA
  15. EUPHYLLINE [Concomitant]
     Indication: CHRONIC OBSTRUCTIVE PULMONARY DISEASE
     Dosage: 300 MG, UNK
  16. EUPHYLLINE [Concomitant]
     Indication: ASTHMA
  17. TERBUTALINE [Concomitant]
     Indication: CHRONIC OBSTRUCTIVE PULMONARY DISEASE
  18. TERBUTALINE [Concomitant]
     Indication: ASTHMA

REACTIONS (3)
  - Pain [Recovered/Resolved]
  - Pyrexia [Recovered/Resolved]
  - Hallucination, visual [Recovered/Resolved]
